FAERS Safety Report 17472064 (Version 1)
Quarter: 2020Q1

REPORT INFORMATION
  Report Type: Spontaneous
  Country: US (occurrence: US)
  Receive Date: 20200217
  Receipt Date: 20200217
  Transmission Date: 20200409
  Serious: No
  Sender: FDA-Public Use
  Company Number: None

PATIENT
  Age: 33 Year
  Sex: Female

DRUGS (1)
  1. ZARXIO [Suspect]
     Active Substance: FILGRASTIM-SNDZ
     Dosage: ?          OTHER STRENGTH:300/0.5 UG/ML;?
     Route: 067
     Dates: start: 20191212

REACTIONS (1)
  - Off label use [None]

NARRATIVE: CASE EVENT DATE: 20200217
